FAERS Safety Report 23462736 (Version 2)
Quarter: 2024Q1

REPORT INFORMATION
  Report Type: Spontaneous
  Country: GB (occurrence: GB)
  Receive Date: 20240131
  Receipt Date: 20240207
  Transmission Date: 20240410
  Serious: Yes (Other)
  Sender: FDA-Public Use
  Company Number: GB-PFIZER INC-PV202400012256

PATIENT
  Age: 75 Year
  Sex: Female

DRUGS (1)
  1. ZOLEDRONIC ACID [Suspect]
     Active Substance: ZOLEDRONIC ACID
     Indication: Osteoporosis
     Dosage: INFUSION

REACTIONS (2)
  - Anti-neutrophil cytoplasmic antibody positive vasculitis [Recovered/Resolved]
  - Off label use [Unknown]
